FAERS Safety Report 11184219 (Version 4)
Quarter: 2016Q2

REPORT INFORMATION
  Report Type: Spontaneous
  Country: US (occurrence: US)
  Receive Date: 20150612
  Receipt Date: 20160609
  Transmission Date: 20160815
  Serious: No
  Sender: FDA-Public Use
  Company Number: US-PFIZER INC-2015194159

PATIENT
  Age: 67 Year
  Sex: Female

DRUGS (2)
  1. IBRANCE [Suspect]
     Active Substance: PALBOCICLIB
     Indication: BREAST CANCER FEMALE
     Dosage: 125 MG, CYCLIC (3 WEEKS ON AND 1 WEEK OFF)
     Dates: start: 20150528, end: 2015
  2. IBRANCE [Suspect]
     Active Substance: PALBOCICLIB
     Indication: HYPERCALCAEMIA
     Dosage: 125 MG, UNK
     Dates: start: 20160323

REACTIONS (2)
  - Tumour marker increased [Unknown]
  - Hot flush [Unknown]

NARRATIVE: CASE EVENT DATE: 2015
